FAERS Safety Report 9153685 (Version 1)
Quarter: 2013Q1

REPORT INFORMATION
  Report Type: Spontaneous
  Country: US (occurrence: None)
  Receive Date: 20130206
  Receipt Date: 20130206
  Transmission Date: 20140127
  Serious: Yes (Life-Threatening, Hospitalization)
  Sender: FDA-Public Use
  Company Number: 2013P1001756

PATIENT
  Age: 53 Year
  Sex: Female

DRUGS (8)
  1. DIGOXIN [Suspect]
     Indication: SUICIDE ATTEMPT
  2. PHENYTOIN [Concomitant]
  3. ALBUTEROL INHALER [Concomitant]
  4. NIFEDIPINE [Concomitant]
  5. PROPAFENONE [Concomitant]
  6. HYDROCHLOROTHIAZIDE [Concomitant]
  7. ROSUVASTATIN [Concomitant]
  8. ALCOHOL [Concomitant]

REACTIONS (19)
  - Suicide attempt [None]
  - Dyspnoea [None]
  - Chest discomfort [None]
  - Abdominal pain [None]
  - Nausea [None]
  - Vomiting [None]
  - Somnolence [None]
  - Alcohol use [None]
  - Heart rate decreased [None]
  - Wheezing [None]
  - Mental status changes [None]
  - Atrial tachycardia [None]
  - Electrocardiogram ST segment depression [None]
  - Atrial fibrillation [None]
  - Mitral valve incompetence [None]
  - Tricuspid valve incompetence [None]
  - Blood alcohol increased [None]
  - Overdose [None]
  - Supraventricular tachycardia [None]
